FAERS Safety Report 6207283-6 (Version None)
Quarter: 2009Q2

REPORT INFORMATION
  Report Type: 
  Country: None (occurrence: None)
  Receive Date: 20090526
  Receipt Date: 20090508
  Transmission Date: 20091009
  Serious: Yes (Hospitalization, Other)
  Sender: FDA-Public Use
  Company Number: PHEH2006US08130

PATIENT
  Age: 51 Year
  Sex: Male
  Weight: 69 kg

DRUGS (27)
  1. ZOMETA [Suspect]
  2. AREDIA [Suspect]
     Dosage: MONTHLY, INTRAVENOUS
     Route: 042
     Dates: start: 20000607
  3. PREDNISONE [Suspect]
     Dosage: 20 MG QD
  4. TETANUS VACCINE (TETANUS VACCINE ADSORBED) [Concomitant]
  5. BUSPAR [Concomitant]
  6. PROPOXYPHENE NAPSYLATE W/ACETAMINOPHENE (DEXTROPROPOXYPHENE NAPSILATE, [Concomitant]
  7. METHADONE HCL [Concomitant]
  8. ZOLOFT [Concomitant]
  9. CELEBREX [Concomitant]
  10. HYDROCODONE BITARTRATE + ACETAMINOPHEN [Concomitant]
  11. KLONOPIN [Concomitant]
  12. ELAVIL [Concomitant]
  13. AUGMENTIN '125' [Concomitant]
  14. DIGOXIN [Concomitant]
  15. MIACALCIN [Concomitant]
  16. WELLBUTRIN (IBUPROPION HYDROCHLORIDE [Concomitant]
  17. ACTONEL [Concomitant]
  18. PREVACID [Concomitant]
  19. PROTONIX [Concomitant]
  20. VIOXX [Concomitant]
  21. TESTOSTERONE [Concomitant]
  22. CARDIZEM CD [Concomitant]
  23. CANDESARTAN CILEXETIL [Concomitant]
  24. PENICILLIN NOS (PENICILLIN NOS) [Concomitant]
  25. BACTRIM [Concomitant]
  26. CALCIUM (CALCIUM) [Concomitant]
  27. VITAMIN D [Concomitant]

REACTIONS (49)
  - ACROCHORDON [None]
  - ANIMAL BITE [None]
  - ANOGENITAL WARTS [None]
  - APPENDICECTOMY [None]
  - ATRIAL FIBRILLATION [None]
  - BACK INJURY [None]
  - BONE DISORDER [None]
  - BONE NEOPLASM MALIGNANT [None]
  - BONE PAIN [None]
  - BUNION [None]
  - CARDIAC DISORDER [None]
  - CELLULITIS [None]
  - CHEST PAIN [None]
  - CONFUSIONAL STATE [None]
  - CYST [None]
  - DEHYDRATION [None]
  - DEPRESSION [None]
  - DRUG ABUSE [None]
  - FIBROMYALGIA [None]
  - FRACTURE [None]
  - GINGIVAL RECESSION [None]
  - GLOSSODYNIA [None]
  - HERPES ZOSTER [None]
  - HYPERHIDROSIS [None]
  - HYPERTENSION [None]
  - HYPOGONADISM [None]
  - IMPAIRED HEALING [None]
  - INTERVERTEBRAL DISC DEGENERATION [None]
  - LIMB INJURY [None]
  - LIP DISORDER [None]
  - MASTICATION DISORDER [None]
  - MULTIPLE FRACTURES [None]
  - MULTIPLE MYELOMA [None]
  - OSTEITIS [None]
  - OSTEOARTHRITIS [None]
  - OSTEONECROSIS [None]
  - OSTEOPOROSIS [None]
  - PAIN [None]
  - RASH [None]
  - RHEUMATOID ARTHRITIS [None]
  - RIB FRACTURE [None]
  - SKIN ULCER [None]
  - SPINAL FRACTURE [None]
  - STAPHYLOCOCCAL INFECTION [None]
  - STEM CELL TRANSPLANT [None]
  - TONGUE DISCOLOURATION [None]
  - TOOTH INJURY [None]
  - TREMOR [None]
  - WEIGHT DECREASED [None]
